FAERS Safety Report 9856139 (Version 2)
Quarter: 2014Q1

REPORT INFORMATION
  Report Type: Spontaneous
  Country: US (occurrence: US)
  Receive Date: 20140130
  Receipt Date: 20140305
  Transmission Date: 20141002
  Serious: Yes (Hospitalization)
  Sender: FDA-Public Use
  Company Number: US-ELI_LILLY_AND_COMPANY-US201401007460

PATIENT
  Sex: Male

DRUGS (11)
  1. HUMALOG LISPRO [Suspect]
     Indication: TYPE 2 DIABETES MELLITUS
     Dosage: 20 U, QID
     Route: 065
     Dates: start: 2009
  2. LANTUS [Concomitant]
     Dosage: UNK, EACH EVENING
  3. METFORMIN [Concomitant]
     Dosage: UNK, BID
  4. ALLOPURINOL [Concomitant]
     Dosage: 300 MG, QD
  5. CLOPIDOGREL [Concomitant]
     Dosage: 1 DF, QD
  6. VITAMIN D                          /00318501/ [Concomitant]
     Dosage: 50000 U, WEEKLY (1/W)
  7. FUROSEMIDE [Concomitant]
     Dosage: UNK, QD
  8. GEMFIBROZIL [Concomitant]
     Dosage: UNK, QD
  9. LISINOPRIL [Concomitant]
     Dosage: UNK, QD
  10. POTASSIUM CHLORIDE [Concomitant]
     Dosage: UNK, QD
  11. PROPRANOLOL [Concomitant]
     Dosage: UNK, QD

REACTIONS (2)
  - Skin ulcer [Recovering/Resolving]
  - Diabetic neuropathy [Unknown]
